FAERS Safety Report 13704057 (Version 1)
Quarter: 2017Q2

REPORT INFORMATION
  Report Type: Spontaneous
  Country: PT (occurrence: PT)
  Receive Date: 20170629
  Receipt Date: 20170629
  Transmission Date: 20170830
  Serious: Yes (Other)
  Sender: FDA-Public Use
  Company Number: PHHY2017PT090906

PATIENT
  Age: 82 Year
  Sex: Male

DRUGS (1)
  1. IMATINIB [Suspect]
     Active Substance: IMATINIB
     Indication: CHRONIC MYELOID LEUKAEMIA
     Dosage: 400 MG, QD
     Route: 065

REACTIONS (4)
  - Lymphadenopathy [Unknown]
  - Malignant neoplasm progression [Unknown]
  - B-cell small lymphocytic lymphoma stage III [Unknown]
  - Pancytopenia [Unknown]
